FAERS Safety Report 19278538 (Version 1)
Quarter: 2021Q2

REPORT INFORMATION
  Report Type: Spontaneous
  Country: US (occurrence: US)
  Receive Date: 20210520
  Receipt Date: 20210520
  Transmission Date: 20210717
  Serious: No
  Sender: FDA-Public Use
  Company Number: None

PATIENT
  Age: 62 Year
  Sex: Male

DRUGS (1)
  1. RIVAROXABAN (RIVAROXABAN 20MG TAB) [Suspect]
     Active Substance: RIVAROXABAN
     Indication: ATRIAL FIBRILLATION
     Route: 048
     Dates: end: 20210202

REACTIONS (6)
  - Pancreatic carcinoma metastatic [None]
  - Pulmonary embolism [None]
  - Chest pain [None]
  - Haemorrhage [None]
  - Troponin increased [None]
  - Anaemia [None]

NARRATIVE: CASE EVENT DATE: 20210202
